FAERS Safety Report 12747544 (Version 2)
Quarter: 2020Q2

REPORT INFORMATION
  Report Type: Spontaneous
  Country: US (occurrence: US)
  Receive Date: 20160915
  Receipt Date: 20200630
  Transmission Date: 20200713
  Serious: No
  Sender: FDA-Public Use
  Company Number: US-JAZZ-2016-US-009834

PATIENT
  Age: 47 Year
  Sex: Female

DRUGS (22)
  1. HYDROCORTISONE. [Concomitant]
     Active Substance: HYDROCORTISONE
  2. VALIUM [Concomitant]
     Active Substance: DIAZEPAM
  3. VALERIAN ROOT [VALERIANA OFFICINALIS ROOT] [Concomitant]
  4. PROGESTERONE. [Concomitant]
     Active Substance: PROGESTERONE
  5. AMBIEN CR [Concomitant]
     Active Substance: ZOLPIDEM TARTRATE
  6. VANIQA [EFLORNITHINE HYDROCHLORIDE] [Concomitant]
  7. TESTOSTERONE. [Concomitant]
     Active Substance: TESTOSTERONE
  8. TRAVATAN Z [Concomitant]
     Active Substance: TRAVOPROST
  9. SPIRONOLACTONE. [Concomitant]
     Active Substance: SPIRONOLACTONE
  10. KLONOPIN [Concomitant]
     Active Substance: CLONAZEPAM
  11. NORCO [Concomitant]
     Active Substance: ACETAMINOPHEN\HYDROCODONE BITARTRATE
  12. MELATONIN [Concomitant]
     Active Substance: MELATONIN
  13. ESTRADIOL. [Concomitant]
     Active Substance: ESTRADIOL
  14. CLONAZEPAM. [Concomitant]
     Active Substance: CLONAZEPAM
  15. XYREM [Suspect]
     Active Substance: SODIUM OXYBATE
     Indication: INSOMNIA
     Dosage: 4.5 G, BID
     Route: 048
     Dates: start: 201207
  16. VIVELLE-DOT [Concomitant]
     Active Substance: ESTRADIOL
  17. ARMOUR THYROID [Concomitant]
     Active Substance: THYROID, PORCINE
  18. ESTRACE [Concomitant]
     Active Substance: ESTRADIOL
  19. LUNESTA [Concomitant]
     Active Substance: ESZOPICLONE
  20. LOTEMAX [Concomitant]
     Active Substance: LOTEPREDNOL ETABONATE
  21. NYSTATIN. [Concomitant]
     Active Substance: NYSTATIN
  22. DIFLUCAN [Concomitant]
     Active Substance: FLUCONAZOLE

REACTIONS (2)
  - Vitamin D deficiency [Recovering/Resolving]
  - Vitamin D increased [Unknown]

NARRATIVE: CASE EVENT DATE: 201212
